FAERS Safety Report 25106635 (Version 1)
Quarter: 2025Q1

REPORT INFORMATION
  Report Type: Spontaneous
  Country: CN (occurrence: CN)
  Receive Date: 20250321
  Receipt Date: 20250321
  Transmission Date: 20250408
  Serious: Yes (Other)
  Sender: ELI LILLY AND COMPANY
  Company Number: CN-Merck Healthcare KGaA-2025012653

PATIENT
  Age: 71 Year
  Sex: Male
  Weight: 57 kg

DRUGS (3)
  1. ERBITUX [Suspect]
     Active Substance: CETUXIMAB
     Indication: Colon cancer
     Route: 041
     Dates: start: 20250207, end: 20250207
  2. IRINOTECAN HYDROCHLORIDE [Suspect]
     Active Substance: IRINOTECAN HYDROCHLORIDE
     Indication: Colon cancer
     Dosage: 200 MG, DAILY
     Route: 041
     Dates: start: 20250207, end: 20250207
  3. RALTITREXED [Suspect]
     Active Substance: RALTITREXED
     Indication: Colon cancer
     Dosage: 3.2 MG, DAILY
     Route: 041
     Dates: start: 20250207, end: 20250207

REACTIONS (1)
  - Myelosuppression [Recovering/Resolving]

NARRATIVE: CASE EVENT DATE: 20250220
